FAERS Safety Report 11604589 (Version 1)
Quarter: 2015Q4

REPORT INFORMATION
  Report Type: Spontaneous
  Country: US (occurrence: None)
  Receive Date: 20151006
  Receipt Date: 20151006
  Transmission Date: 20160304
  Serious: No
  Sender: FDA-Public Use
  Company Number: None

PATIENT
  Age: 64 Year
  Sex: Female
  Weight: 90.72 kg

DRUGS (16)
  1. MACRODANTIN [Concomitant]
     Active Substance: NITROFURANTOIN
  2. DYAZIDE [Concomitant]
     Active Substance: HYDROCHLOROTHIAZIDE\TRIAMTERENE
  3. PATONAL SOLUTION [Concomitant]
  4. DETROL LA [Concomitant]
     Active Substance: TOLTERODINE TARTRATE
  5. RHINOCORT AQUA [Concomitant]
     Active Substance: BUDESONIDE
  6. SYMBICORT [Concomitant]
     Active Substance: BUDESONIDE\FORMOTEROL FUMARATE DIHYDRATE
  7. COQ 10 [Concomitant]
     Active Substance: UBIDECARENONE
  8. NAPROXEN. [Concomitant]
     Active Substance: NAPROXEN
  9. WELCHOL [Concomitant]
     Active Substance: COLESEVELAM HYDROCHLORIDE
  10. CLARINEX [Concomitant]
     Active Substance: DESLORATADINE
  11. CITRACAL +D3 [Concomitant]
  12. ZETIA [Concomitant]
     Active Substance: EZETIMIBE
  13. LYRICA [Suspect]
     Active Substance: PREGABALIN
     Indication: FIBROMYALGIA
     Route: 048
     Dates: start: 20141015, end: 20141125
  14. PROTONIX [Concomitant]
     Active Substance: PANTOPRAZOLE SODIUM
  15. ALBUTEROL INHALER [Concomitant]
     Active Substance: ALBUTEROL
  16. SINGULAIR [Concomitant]
     Active Substance: MONTELUKAST SODIUM

REACTIONS (2)
  - Vision blurred [None]
  - Eye disorder [None]

NARRATIVE: CASE EVENT DATE: 20141123
